FAERS Safety Report 9089058 (Version 1)
Quarter: 2013Q1

REPORT INFORMATION
  Report Type: Spontaneous
  Country: IT (occurrence: IT)
  Receive Date: 20130131
  Receipt Date: 20130131
  Transmission Date: 20140127
  Serious: Yes (Other)
  Sender: FDA-Public Use
  Company Number: PHHY2013IT008702

PATIENT
  Age: 53 Year
  Sex: Male

DRUGS (1)
  1. KETOPROFEN [Suspect]
     Dosage: 1 DF (AT AT A  1 POSOLOGY UNIT)
     Route: 048
     Dates: start: 20121016, end: 20121016

REACTIONS (3)
  - Dyspnoea [Recovering/Resolving]
  - Hyperhidrosis [Recovering/Resolving]
  - Pallor [Recovering/Resolving]
